FAERS Safety Report 4877855-X (Version None)
Quarter: 2006Q1

REPORT INFORMATION
  Report Type: 
  Country: None (occurrence: None)
  Receive Date: 20060111
  Receipt Date: 20051122
  Transmission Date: 20060701
  Serious: Yes (Other)
  Sender: FDA-Public Use
  Company Number: DE-BRISTOL-MYERS SQUIBB COMPANY-13191051

PATIENT
  Age: 44 Year
  Sex: Female
  Weight: 62 kg

DRUGS (2)
  1. TAXOL [Suspect]
     Indication: OVARIAN CANCER
     Route: 042
     Dates: start: 20040804, end: 20051117
  2. CARBOPLATIN [Suspect]
     Indication: OVARIAN CANCER
     Route: 042
     Dates: start: 20040804, end: 20041117

REACTIONS (2)
  - ABDOMINAL PAIN [None]
  - PSYCHOSOMATIC DISEASE [None]
